FAERS Safety Report 25175963 (Version 2)
Quarter: 2025Q2

REPORT INFORMATION
  Report Type: Report from Study
  Country: US (occurrence: US)
  Receive Date: 20250409
  Receipt Date: 20250422
  Transmission Date: 20250717
  Serious: No
  Sender: ACADIA PHARMACEUTICALS
  Company Number: US-ACADIA PHARMACEUTICALS INC.-ACA-2025-PIM-003892

PATIENT
  Age: 79 Year
  Sex: Female

DRUGS (14)
  1. NUPLAZID [Suspect]
     Active Substance: PIMAVANSERIN TARTRATE
     Indication: Parkinson^s disease psychosis
     Dosage: 34 MILLIGRAM, QD
     Route: 048
     Dates: start: 20250307
  2. CARBIDOPA\LEVODOPA [Concomitant]
     Active Substance: CARBIDOPA\LEVODOPA
  3. CLONAZEPAM [Concomitant]
     Active Substance: CLONAZEPAM
  4. CRANBERRY [Concomitant]
     Active Substance: CRANBERRY
  5. DEMANNOSE [Concomitant]
     Active Substance: DEMANNOSE
  6. ESTRADIOL [Concomitant]
     Active Substance: ESTRADIOL
     Route: 067
  7. ALBUTEROL\IPRATROPIUM [Concomitant]
     Active Substance: ALBUTEROL\IPRATROPIUM
  8. LACTOBACILLUS [LACTOBACILLUS ACIDOPHILUS] [Concomitant]
  9. LOSARTAN [Concomitant]
     Active Substance: LOSARTAN
  10. MELOXICAM [Concomitant]
     Active Substance: MELOXICAM
  11. MIRTAZAPINE [Concomitant]
     Active Substance: MIRTAZAPINE
  12. PREGABALIN [Concomitant]
     Active Substance: PREGABALIN
  13. PROPRANOLOL [Concomitant]
     Active Substance: PROPRANOLOL HYDROCHLORIDE
  14. ROSUVASTATIN [Concomitant]
     Active Substance: ROSUVASTATIN

REACTIONS (1)
  - Urinary tract infection [Recovered/Resolved]

NARRATIVE: CASE EVENT DATE: 20250401
